FAERS Safety Report 17130702 (Version 2)
Quarter: 2020Q1

REPORT INFORMATION
  Report Type: Spontaneous
  Country: RU (occurrence: RU)
  Receive Date: 20191209
  Receipt Date: 20200107
  Transmission Date: 20200409
  Serious: Yes (Hospitalization, Other)
  Sender: FDA-Public Use
  Company Number: NVSC2019RU040156

PATIENT
  Age: 44 Year
  Sex: Male

DRUGS (5)
  1. FLUOROURACIL. [Suspect]
     Active Substance: FLUOROURACIL
     Dosage: UNK (25 PERCENT REDUCTION OF DOSE AT THE NEXT 7 COURSES OF CHEMOTHERAPY)
     Route: 042
  2. OXALIPLATIN. [Suspect]
     Active Substance: OXALIPLATIN
     Indication: RECTAL ADENOCARCINOMA
     Dosage: 85 MG/M2, QD
     Route: 065
  3. FLUOROURACIL. [Suspect]
     Active Substance: FLUOROURACIL
     Indication: RECTAL ADENOCARCINOMA
     Dosage: 3240 MG, QD (3200 MG/M2) (6483 MG OVER 46 HOURS)
     Route: 042
     Dates: start: 20180313
  4. IRINOTECAN [Suspect]
     Active Substance: IRINOTECAN
     Indication: RECTAL ADENOCARCINOMA
     Dosage: 165 MG/M2, QD
     Route: 065
  5. CALCIUM FOLINATE [Suspect]
     Active Substance: LEUCOVORIN CALCIUM
     Indication: RECTAL ADENOCARCINOMA
     Dosage: 200 MG/M2
     Route: 065

REACTIONS (10)
  - Disorientation [Recovered/Resolved]
  - Vomiting [Recovered/Resolved]
  - Metabolic acidosis [Recovered/Resolved]
  - Nausea [Recovered/Resolved]
  - Hepatic encephalopathy [Recovered/Resolved]
  - Retrograde amnesia [Recovered/Resolved]
  - Bone marrow toxicity [Recovered/Resolved]
  - Supraventricular extrasystoles [Recovered/Resolved]
  - Depressed level of consciousness [Recovered/Resolved]
  - Hyperlactacidaemia [Recovered/Resolved]

NARRATIVE: CASE EVENT DATE: 20180315
